FAERS Safety Report 21595527 (Version 2)
Quarter: 2023Q2

REPORT INFORMATION
  Report Type: Other
  Country: DE (occurrence: DE)
  Receive Date: 20221115
  Receipt Date: 20230407
  Transmission Date: 20230721
  Serious: Yes (Hospitalization, Other)
  Sender: FDA-Public Use
  Company Number: DE-ROCHE-2811595

PATIENT
  Age: 46 Year
  Sex: Female

DRUGS (24)
  1. OCREVUS [Suspect]
     Active Substance: OCRELIZUMAB
     Indication: Relapsing-remitting multiple sclerosis
     Route: 042
     Dates: start: 20210316
  2. OCREVUS [Suspect]
     Active Substance: OCRELIZUMAB
     Route: 042
     Dates: start: 20210330, end: 20210330
  3. OCREVUS [Suspect]
     Active Substance: OCRELIZUMAB
     Route: 042
  4. COMIRNATY [Suspect]
     Active Substance: TOZINAMERAN
     Indication: COVID-19 prophylaxis
     Dosage: FIRST DOSE
     Route: 065
     Dates: start: 20210707
  5. COMIRNATY [Suspect]
     Active Substance: TOZINAMERAN
     Dosage: SECOND DOSE
     Route: 065
     Dates: start: 20210730
  6. VESIKUR [Suspect]
     Active Substance: SOLIFENACIN SUCCINATE
     Indication: Product used for unknown indication
     Route: 065
  7. CANNABIS SATIVA SUBSP. INDICA TOP [Concomitant]
     Active Substance: CANNABIS SATIVA SUBSP. INDICA TOP
     Dosage: UNK, AS NEEDED (PRESCRIBED BY A DOCTOR)
  8. TOLPERISONE [Concomitant]
     Active Substance: TOLPERISONE
  9. ACETAMINOPHEN [Concomitant]
     Active Substance: ACETAMINOPHEN
     Dosage: AS REQUIRED
  10. LEVOTHYROXINE SODIUM [Concomitant]
     Active Substance: LEVOTHYROXINE SODIUM
     Dosage: 100/10 MCG IN THE MORNING
  11. DIMENHYDRINATE [Concomitant]
     Active Substance: DIMENHYDRINATE
  12. CORTISONE [Concomitant]
     Active Substance: CORTISONE
     Route: 042
  13. VIGIL [Concomitant]
  14. RISPERIDONE [Concomitant]
     Active Substance: RISPERIDONE
  15. NAPROXEN [Concomitant]
     Active Substance: NAPROXEN
  16. BISOPROLOL [Concomitant]
     Active Substance: BISOPROLOL
  17. BISOPROLOL [Concomitant]
     Active Substance: BISOPROLOL
     Dosage: 0-0-1
  18. BISOPROLOL [Concomitant]
     Active Substance: BISOPROLOL
     Dosage: 1-0-0
  19. NARATRIPTAN [Concomitant]
     Active Substance: NARATRIPTAN HYDROCHLORIDE
  20. ZOLMITRIPTAN [Concomitant]
     Active Substance: ZOLMITRIPTAN
     Dosage: 1 PUFF
     Route: 045
  21. GABAPENTIN [Concomitant]
     Active Substance: GABAPENTIN
  22. RISPERIDONE [Concomitant]
     Active Substance: RISPERIDONE
  23. BISOPROLOL [Concomitant]
     Active Substance: BISOPROLOL
  24. BISOPROLOL [Concomitant]
     Active Substance: BISOPROLOL

REACTIONS (26)
  - Hypotension [Recovered/Resolved]
  - Muscular weakness [Not Recovered/Not Resolved]
  - Listless [Not Recovered/Not Resolved]
  - Fatigue [Recovered/Resolved]
  - Rhinorrhoea [Recovered/Resolved]
  - Feeling cold [Not Recovered/Not Resolved]
  - Pain [Recovered/Resolved]
  - Throat irritation [Recovered/Resolved]
  - Urinary retention [Recovered/Resolved]
  - Tendon disorder [Recovered/Resolved]
  - Asthenia [Recovered/Resolved]
  - Nasopharyngitis [Not Recovered/Not Resolved]
  - Hypoaesthesia [Unknown]
  - Joint range of motion decreased [Recovered/Resolved]
  - Cough [Recovered/Resolved]
  - Nasal crusting [Recovered/Resolved]
  - Mucosal pain [Recovered/Resolved]
  - Headache [Not Recovered/Not Resolved]
  - Oral mucosal blistering [Recovered/Resolved]
  - Migraine [Recovered/Resolved]
  - Cholelithiasis [Recovered/Resolved]
  - Nausea [Unknown]
  - Vomiting [Unknown]
  - Nail disorder [Unknown]
  - COVID-19 [Recovered/Resolved]
  - Tachycardia [Not Recovered/Not Resolved]

NARRATIVE: CASE EVENT DATE: 20210405
